FAERS Safety Report 15759504 (Version 3)
Quarter: 2022Q2

REPORT INFORMATION
  Report Type: Spontaneous
  Country: CZ (occurrence: CZ)
  Receive Date: 20181226
  Receipt Date: 20220517
  Transmission Date: 20220721
  Serious: Yes (Congenital Anomaly, Other)
  Sender: FDA-Public Use
  Company Number: None

PATIENT
  Age: 36 Week
  Sex: Female

DRUGS (4)
  1. LAMOTRIGINE [Suspect]
     Active Substance: LAMOTRIGINE
     Indication: Obsessive-compulsive disorder
     Dosage: UNK
     Route: 064
  2. SERTRALINE [Suspect]
     Active Substance: SERTRALINE HYDROCHLORIDE
     Indication: Product used for unknown indication
     Dosage: UNK
     Route: 064
  3. FLUPENTIXOL [Suspect]
     Active Substance: FLUPENTIXOL
     Indication: Obsessive-compulsive disorder
     Dosage: UNK
     Route: 064
  4. SULPIRIDE [Suspect]
     Active Substance: SULPIRIDE
     Indication: Obsessive-compulsive disorder
     Dosage: UNK
     Route: 064

REACTIONS (2)
  - Premature baby [Unknown]
  - Foetal exposure during pregnancy [Unknown]
